FAERS Safety Report 15967309 (Version 3)
Quarter: 2019Q4

REPORT INFORMATION
  Report Type: Spontaneous
  Country: US (occurrence: US)
  Receive Date: 20190215
  Receipt Date: 20191028
  Transmission Date: 20200122
  Serious: No
  Sender: FDA-Public Use
  Company Number: US-SA-2019SA041161

PATIENT
  Age: 78 Year
  Sex: Male

DRUGS (1)
  1. LOVENOX [Suspect]
     Active Substance: ENOXAPARIN SODIUM
     Indication: PULMONARY EMBOLISM
     Dosage: 150 MG, Q12H
     Route: 058

REACTIONS (6)
  - Injection site nodule [Unknown]
  - Injection site bruising [Not Recovered/Not Resolved]
  - Injection site rash [Unknown]
  - Pruritus [Unknown]
  - Dry skin [Unknown]
  - Injection site induration [Not Recovered/Not Resolved]
